FAERS Safety Report 5037347-4 (Version None)
Quarter: 2006Q2

REPORT INFORMATION
  Report Type: 
  Country: None (occurrence: None)
  Receive Date: 20060601
  Receipt Date: 20060214
  Transmission Date: 20061013
  Serious: No
  Sender: FDA-Public Use
  Company Number: 2006PV008640

PATIENT
  Age: 51 Year
  Sex: Female
  Weight: 105.2345 kg

DRUGS (3)
  1. BYETTA [Suspect]
     Indication: DIABETES MELLITUS NON-INSULIN-DEPENDENT
     Dosage: SEE IMAGE
     Route: 058
     Dates: start: 20051231, end: 20060129
  2. BYETTA [Suspect]
     Indication: DIABETES MELLITUS NON-INSULIN-DEPENDENT
     Dosage: SEE IMAGE
     Route: 058
     Dates: start: 20060130
  3. PROVIGIL [Concomitant]

REACTIONS (4)
  - ACNE [None]
  - DECREASED APPETITE [None]
  - THERAPEUTIC RESPONSE UNEXPECTED [None]
  - TREMOR [None]
